FAERS Safety Report 4553773-1 (Version None)
Quarter: 2005Q1

REPORT INFORMATION
  Report Type: 
  Country: None (occurrence: None)
  Receive Date: 20050113
  Receipt Date: 20050113
  Transmission Date: 20050727
  Serious: Yes (Other)
  Sender: FDA-Public Use
  Company Number: None

PATIENT
  Sex: Male
  Weight: 83.0083 kg

DRUGS (13)
  1. FEEN-A-MINT NO DOSE FORM [Suspect]
     Indication: CONSTIPATION
     Dosage: ORAL
     Route: 048
     Dates: start: 19740101, end: 20040101
  2. DULCOLAX [Suspect]
     Indication: CONSTIPATION
     Dosage: ORAL
     Route: 048
  3. SENOKOT [Suspect]
     Indication: CONSTIPATION
     Dosage: ORAL
     Route: 048
  4. LEVAQUIN [Concomitant]
  5. PAXIL [Concomitant]
  6. ZOLOFT [Concomitant]
  7. ORUVAIL [Concomitant]
  8. NOVOLIN 70/30 INJECTABLE [Concomitant]
  9. PAMELOR [Concomitant]
  10. TAGAMET [Concomitant]
  11. VITAMIN B6 [Concomitant]
  12. VITAMIN B-12 [Concomitant]
  13. EXCEDRIN (MIGRAINE) [Concomitant]

REACTIONS (3)
  - CONSTIPATION [None]
  - DRUG DEPENDENCE [None]
  - RECTAL HAEMORRHAGE [None]
